FAERS Safety Report 9108151 (Version 1)
Quarter: 2013Q1

REPORT INFORMATION
  Report Type: Spontaneous
  Country: US (occurrence: US)
  Receive Date: 20130221
  Receipt Date: 20130221
  Transmission Date: 20140127
  Serious: No
  Sender: FDA-Public Use
  Company Number: US-BAYER-2013-022373

PATIENT
  Age: 76 Year
  Sex: Female
  Weight: 117.91 kg

DRUGS (8)
  1. ALEVE CAPLET/TABLET,MIDOL EXTENDED RELIEF CAPLET [Suspect]
     Dosage: 2 DF, QD
     Route: 048
     Dates: start: 2012
  2. SIMVASTATIN [Concomitant]
     Dosage: UNK
  3. ACIPHEX [Concomitant]
     Dosage: UNK
  4. LEVOTHYROXINE [Concomitant]
     Dosage: UNK
  5. VALSARTAN [Concomitant]
     Dosage: UNK
  6. HYDROCHLOROTHIAZIDE [Concomitant]
     Dosage: UNK
  7. FEBUXOSTAT [Concomitant]
     Dosage: UNK
  8. INSULIN [Concomitant]
     Dosage: UNK

REACTIONS (2)
  - Drug ineffective [None]
  - Incorrect drug administration duration [None]
